FAERS Safety Report 7568940-2 (Version None)
Quarter: 2011Q2

REPORT INFORMATION
  Report Type: 
  Country: None (occurrence: None)
  Receive Date: 20110623
  Receipt Date: 20110614
  Transmission Date: 20111010
  Serious: Yes (Disabling)
  Sender: FDA-Public Use
  Company Number: NL-ASTRAZENECA-2011SE36258

PATIENT
  Sex: Male

DRUGS (1)
  1. ESOMEPRAZOLE MAGNESIUM [Suspect]
     Route: 048

REACTIONS (5)
  - AMNESIA [None]
  - HEADACHE [None]
  - GAIT DISTURBANCE [None]
  - MUSCULAR WEAKNESS [None]
  - FATIGUE [None]
